FAERS Safety Report 4312868-8 (Version None)
Quarter: 2004Q1

REPORT INFORMATION
  Report Type: 
  Country: None (occurrence: None)
  Receive Date: 20040304
  Receipt Date: 20040224
  Transmission Date: 20041129
  Serious: Yes (Death, Other)
  Sender: FDA-Public Use
  Company Number: 2004003175

PATIENT
  Age: 63 Year
  Sex: Male
  Weight: 56 kg

DRUGS (10)
  1. VFEND [Suspect]
     Indication: FUNGAL PERITONITIS
     Dosage: 200 MG (BID), ORAL
     Route: 048
     Dates: start: 20040115, end: 20040118
  2. ACYCLOVIR [Concomitant]
  3. ETHAMBUTOL HCL [Concomitant]
  4. ISONIAZID [Concomitant]
  5. PYRAZINAMIDE [Concomitant]
  6. AMPHOTERICIN B [Concomitant]
  7. IMIPENEM (IMIPENEM) [Concomitant]
  8. RANITIDINE [Concomitant]
  9. URSODEOXYCHOLIC ACID (URSODEOXYCHOLIC ACID) [Concomitant]
  10. DOPAMINE HCL [Concomitant]

REACTIONS (4)
  - ACTIVATED PARTIAL THROMBOPLASTIN TIME PROLONGED [None]
  - PLATELET COUNT DECREASED [None]
  - PNEUMONIA [None]
  - SEPTIC SHOCK [None]
